FAERS Safety Report 5007276-0 (Version None)
Quarter: 2006Q2

REPORT INFORMATION
  Report Type: 
  Country: None (occurrence: None)
  Receive Date: 20060517
  Receipt Date: 20060502
  Transmission Date: 20061013
  Serious: Yes (Hospitalization)
  Sender: FDA-Public Use
  Company Number: GXKR2006US02449

PATIENT
  Age: 68 Year
  Sex: Female

DRUGS (3)
  1. NAPROXEN [Suspect]
     Indication: ARTHRALGIA
     Dosage: 1.5-2.0 G X 4, ORAL
     Route: 048
  2. HYDROCHLOROTHIAZIDE [Suspect]
     Indication: HYPERTENSION
     Dosage: 25 MG, ORAL
     Route: 048
  3. METHYLSULFONYLMETHANE [Concomitant]

REACTIONS (8)
  - CARDIAC FAILURE CONGESTIVE [None]
  - FLUID OVERLOAD [None]
  - HAEMODIALYSIS [None]
  - HEPATIC FAILURE [None]
  - OVERDOSE [None]
  - RENAL FAILURE [None]
  - TORSADE DE POINTES [None]
  - URINARY TRACT INFECTION [None]
